FAERS Safety Report 8409891-0 (Version None)
Quarter: 2012Q2

REPORT INFORMATION
  Report Type: 
  Country: None (occurrence: None)
  Receive Date: 20120605
  Receipt Date: 20120524
  Transmission Date: 20120825
  Serious: Yes (Other)
  Sender: FDA-Public Use
  Company Number: CA-JNJFOC-20120518818

PATIENT
  Sex: Male
  Weight: 102 kg

DRUGS (12)
  1. AMPLODIPIN [Concomitant]
     Route: 065
  2. VITAMIN B-12 [Concomitant]
     Dosage: 100 MCG
     Route: 065
  3. LYRICA [Suspect]
     Dosage: 75 MG REGULAR DOSE + EXTRA DOSE 50 MG
     Route: 065
     Dates: start: 20120510
  4. VITAMIN D [Concomitant]
  5. REMICADE [Suspect]
     Indication: CROHN'S DISEASE
     Route: 042
     Dates: start: 20090401
  6. PANTOPRAZOLE [Concomitant]
     Route: 048
  7. SERTRALINE HYDROCHLORIDE [Concomitant]
     Dosage: 100 MCG
     Route: 065
  8. FENTANYL [Concomitant]
     Route: 065
  9. AZATHIOPRINE [Concomitant]
     Route: 065
  10. ANTI HYPERTENSIVE MEDICATIONS [Suspect]
     Indication: HYPERTENSION
     Route: 065
  11. LYRICA [Suspect]
     Indication: PRODUCT USED FOR UNKNOWN INDICATION
     Route: 065
  12. APO-NORTRIPTYLINE [Concomitant]
     Route: 065

REACTIONS (2)
  - HYPOTENSION [None]
  - SYNCOPE [None]
